FAERS Safety Report 4543896-5 (Version None)
Quarter: 2005Q1

REPORT INFORMATION
  Report Type: 
  Country: None (occurrence: None)
  Receive Date: 20050103
  Receipt Date: 20040726
  Transmission Date: 20050727
  Serious: Yes (Other)
  Sender: FDA-Public Use
  Company Number: GXKR2004ES00572

PATIENT
  Age: 70 Year
  Sex: Female

DRUGS (4)
  1. RANITIDINE [Suspect]
  2. DIURETICS [Concomitant]
  3. CORTICOSTEROIDS [Concomitant]
  4. STANOZOLOL (STANOZOLOL) [Concomitant]

REACTIONS (1)
  - NEPHROTIC SYNDROME [None]
